FAERS Safety Report 18345914 (Version 1)
Quarter: 2020Q4

REPORT INFORMATION
  Report Type: Spontaneous
  Country: US (occurrence: US)
  Receive Date: 20201005
  Receipt Date: 20201005
  Transmission Date: 20210114
  Serious: Yes (Other)
  Sender: FDA-Public Use
  Company Number: US-JNJFOC-20200942347

PATIENT
  Age: 65 Year
  Sex: Male
  Weight: 93 kg

DRUGS (13)
  1. VITAMIN D3 [Concomitant]
     Active Substance: CHOLECALCIFEROL
  2. MIFEPRISTONE [Suspect]
     Active Substance: MIFEPRISTONE
     Route: 048
     Dates: start: 20190620
  3. SPIRONOLACTONE. [Concomitant]
     Active Substance: SPIRONOLACTONE
  4. LOSARTAN. [Concomitant]
     Active Substance: LOSARTAN
  5. TRESIBA [Concomitant]
     Active Substance: INSULIN DEGLUDEC
  6. XARELTO [Suspect]
     Active Substance: RIVAROXABAN
     Indication: PRODUCT USED FOR UNKNOWN INDICATION
     Route: 048
  7. MIFEPRISTONE [Suspect]
     Active Substance: MIFEPRISTONE
     Indication: CUSHING^S SYNDROME
     Route: 048
     Dates: start: 20190521, end: 20190619
  8. METFORMIN [Concomitant]
     Active Substance: METFORMIN HYDROCHLORIDE
  9. LISINOPRIL                         /00894002/ [Concomitant]
     Active Substance: LISINOPRIL
     Dates: end: 2020
  10. FENOFIBRATE. [Concomitant]
     Active Substance: FENOFIBRATE
  11. TERAZOSIN                          /00685102/ [Concomitant]
  12. FISH OIL                           /00492901/ [Concomitant]
     Active Substance: COD LIVER OIL
  13. FARXIGA [Concomitant]
     Active Substance: DAPAGLIFLOZIN PROPANEDIOL

REACTIONS (9)
  - Pancreatic mass [Unknown]
  - Upper limb fracture [Unknown]
  - Vomiting [Not Recovered/Not Resolved]
  - Fall [Unknown]
  - Contusion [Not Recovered/Not Resolved]
  - Platelet count decreased [Unknown]
  - Blood potassium decreased [Not Recovered/Not Resolved]
  - Blood cholesterol increased [Unknown]
  - Headache [Recovered/Resolved]

NARRATIVE: CASE EVENT DATE: 202005
